FAERS Safety Report 5369347-9 (Version None)
Quarter: 2007Q2

REPORT INFORMATION
  Report Type: 
  Country: None (occurrence: None)
  Receive Date: 20070625
  Receipt Date: 20070320
  Transmission Date: 20071010
  Serious: No
  Sender: FDA-Public Use
  Company Number: US-ASTRAZENECA-2007UW05438

PATIENT
  Age: 81 Year
  Sex: Female
  Weight: 59.9 kg

DRUGS (5)
  1. CRESTOR [Suspect]
     Indication: BLOOD CHOLESTEROL INCREASED
     Route: 048
     Dates: start: 20070301
  2. COUMADIN [Concomitant]
  3. DIOVAN [Concomitant]
  4. DYAZIDE [Concomitant]
  5. LOPRESSOR [Concomitant]

REACTIONS (1)
  - FAECES DISCOLOURED [None]
